FAERS Safety Report 5950601-4 (Version None)
Quarter: 2008Q4

REPORT INFORMATION
  Report Type: 
  Country: None (occurrence: None)
  Receive Date: 20081022
  Receipt Date: 20080815
  Transmission Date: 20090506
  Serious: No
  Sender: FDA-Public Use
  Company Number: ALL1-2008-02104

PATIENT
  Age: 41 Year
  Sex: Female
  Weight: 94.3 kg

DRUGS (4)
  1. VYVANSE [Suspect]
     Indication: NARCOLEPSY
     Dosage: 30 MG,1X/DAY:QD,ORAL
     Route: 048
     Dates: start: 20080713
  2. MULTIVITAMIN/00831701/ (VITAMIN NOS) [Concomitant]
  3. WELLBUTRIN [Concomitant]
  4. HERBAL NOS W/VITAMINS NOS [Concomitant]

REACTIONS (2)
  - CONSTIPATION [None]
  - OFF LABEL USE [None]
